FAERS Safety Report 9186159 (Version 3)
Quarter: 2013Q3

REPORT INFORMATION
  Report Type: Spontaneous
  Country: US (occurrence: US)
  Receive Date: 20130325
  Receipt Date: 20130920
  Transmission Date: 20140515
  Serious: Yes (Hospitalization, Disabling, Other)
  Sender: FDA-Public Use
  Company Number: US-GLAXOSMITHKLINE-A1015820A

PATIENT
  Age: 52 Year
  Sex: Female

DRUGS (5)
  1. ADVAIR [Suspect]
     Indication: CHRONIC OBSTRUCTIVE PULMONARY DISEASE
     Dosage: 1PUFF TWICE PER DAY
     Route: 055
     Dates: start: 20110727
  2. ALBUTEROL [Concomitant]
  3. VENTOLIN HFA [Concomitant]
     Dates: start: 20110920
  4. NEBULIZER [Concomitant]
  5. HEART MEDICATION [Concomitant]

REACTIONS (4)
  - Chronic obstructive pulmonary disease [Recovering/Resolving]
  - Asthma [Recovering/Resolving]
  - Treatment noncompliance [Unknown]
  - Lung disorder [Unknown]
